FAERS Safety Report 13211045 (Version 2)
Quarter: 2017Q1

REPORT INFORMATION
  Report Type: Spontaneous
  Country: BR (occurrence: BR)
  Receive Date: 20170210
  Receipt Date: 20170217
  Transmission Date: 20170428
  Serious: Yes (Hospitalization, Other)
  Sender: FDA-Public Use
  Company Number: BR-NOVOPROD-530357

PATIENT
  Sex: Female

DRUGS (2)
  1. VICTOZA [Suspect]
     Active Substance: LIRAGLUTIDE
     Indication: TYPE 2 DIABETES MELLITUS
     Dosage: 0.6 MG, QD (FOR ONE WEEK)
     Route: 065
     Dates: start: 201701
  2. VICTOZA [Suspect]
     Active Substance: LIRAGLUTIDE
     Indication: OBESITY
     Dosage: 1.2 MG, QD
     Route: 065
     Dates: end: 20170126

REACTIONS (1)
  - Gastrointestinal infection [Recovering/Resolving]

NARRATIVE: CASE EVENT DATE: 20170124
